FAERS Safety Report 16314256 (Version 1)
Quarter: 2019Q2

REPORT INFORMATION
  Report Type: Spontaneous
  Country: PR (occurrence: PR)
  Receive Date: 20190514
  Receipt Date: 20190514
  Transmission Date: 20190711
  Serious: Yes (Life-Threatening, Hospitalization, Other)
  Sender: FDA-Public Use
  Company Number: None

PATIENT
  Age: 24 Year
  Sex: Male
  Weight: 67.5 kg

DRUGS (1)
  1. BUPROPION HORIZONTAL/RECTANGLED SHAPE [Suspect]
     Active Substance: BUPROPION
     Indication: BIPOLAR DISORDER
     Dosage: ?          QUANTITY:300 TABLET(S);?
     Route: 048
     Dates: start: 20190427, end: 20190511

REACTIONS (6)
  - Feeling abnormal [None]
  - Suicidal ideation [None]
  - Mental disorder [None]
  - Intentional self-injury [None]
  - Product substitution issue [None]
  - Taciturnity [None]

NARRATIVE: CASE EVENT DATE: 20190507
